FAERS Safety Report 6684789-7 (Version None)
Quarter: 2010Q2

REPORT INFORMATION
  Report Type: 
  Country: None (occurrence: None)
  Receive Date: 20100416
  Receipt Date: 20100405
  Transmission Date: 20101027
  Serious: Yes (Hospitalization, Other)
  Sender: FDA-Public Use
  Company Number: US-ELI_LILLY_AND_COMPANY-US201004000936

PATIENT
  Sex: Female

DRUGS (11)
  1. BYETTA [Suspect]
     Indication: TYPE 2 DIABETES MELLITUS
     Dosage: 5 UG, 2/D
     Route: 058
     Dates: start: 20070101, end: 20070101
  2. BYETTA [Suspect]
     Dosage: 10 UG, 2/D
     Route: 058
     Dates: start: 20070101
  3. BYETTA [Suspect]
     Dosage: 5 UG, 2/D
     Route: 058
     Dates: start: 20100101, end: 20100201
  4. BYETTA [Suspect]
     Dosage: 10 UG, 2/D
     Route: 058
     Dates: start: 20100201
  5. CARVEDILOL [Concomitant]
     Dosage: UNK, DAILY (1/D)
     Route: 048
  6. ISOSORBIDE DINITRATE [Concomitant]
     Dosage: UNK, DAILY (1/D)
     Route: 048
  7. POTASSIUM [Concomitant]
     Dosage: UNK, DAILY (1/D)
     Route: 048
  8. CYMBALTA [Concomitant]
     Dosage: UNK, DAILY (1/D)
     Route: 048
  9. ZONISAMIDE [Concomitant]
     Dosage: UNK, DAILY (1/D)
     Route: 048
  10. CELEBREX [Concomitant]
     Dosage: UNK, DAILY (1/D)
     Route: 048
  11. CRESTOR [Concomitant]
     Dosage: UNK, DAILY (1/D)
     Route: 048

REACTIONS (18)
  - ABASIA [None]
  - ANGINA PECTORIS [None]
  - BENIGN NEOPLASM OF THYROID GLAND [None]
  - DIPLEGIA [None]
  - DYSPNOEA [None]
  - FALL [None]
  - GAIT DISTURBANCE [None]
  - INJECTION SITE EXTRAVASATION [None]
  - INJECTION SITE HAEMATOMA [None]
  - INTERVERTEBRAL DISC PROTRUSION [None]
  - MOVEMENT DISORDER [None]
  - MYOCARDIAL INFARCTION [None]
  - OFF LABEL USE [None]
  - PAIN IN EXTREMITY [None]
  - PNEUMONIA [None]
  - SPINAL FUSION SURGERY [None]
  - THROMBOSIS [None]
  - WEIGHT DECREASED [None]
